FAERS Safety Report 13052209 (Version 5)
Quarter: 2019Q3

REPORT INFORMATION
  Report Type: Spontaneous
  Country: FR (occurrence: FR)
  Receive Date: 20161221
  Receipt Date: 20190904
  Transmission Date: 20191004
  Serious: Yes (Other)
  Sender: FDA-Public Use
  Company Number: FR-MYLANLABS-2016M1045747

PATIENT
  Age: 73 Year
  Sex: Female

DRUGS (7)
  1. VERAPAMIL MYLAN L.P. 120 MG, COMPRIM? PELLICUL? ? LIB?RATION PROLONG?E [Suspect]
     Active Substance: VERAPAMIL HYDROCHLORIDE
     Indication: ATRIAL FIBRILLATION
     Dosage: UNK
  2. VERAPAMIL MYLAN L.P. 120 MG, COMPRIM? PELLICUL? ? LIB?RATION PROLONG?E [Suspect]
     Active Substance: VERAPAMIL HYDROCHLORIDE
     Dosage: 1 DF, QD
     Dates: start: 20180614
  3. CORDARONE [Suspect]
     Active Substance: AMIODARONE HYDROCHLORIDE
     Indication: PRODUCT USED FOR UNKNOWN INDICATION
     Dosage: 200 MG, UNK
  4. TANGANIL [Concomitant]
     Active Substance: ACETYLLEUCINE
     Indication: DIZZINESS
     Dosage: UNK
     Dates: start: 2016
  5. SURBRONC [Concomitant]
     Active Substance: AMBROXOL HYDROCHLORIDE
     Indication: BRONCHITIS CHRONIC
     Dosage: UNK
     Dates: start: 2010
  6. DELURSAN [Concomitant]
     Active Substance: URSODIOL
     Indication: CHOLELITHIASIS
     Dosage: UNK
  7. PYOSTACINE [Concomitant]
     Active Substance: PRISTINAMYCIN
     Indication: PROPHYLAXIS
     Dosage: UNK

REACTIONS (29)
  - Weight decreased [Unknown]
  - Necrosis [Unknown]
  - Hypoaesthesia [Unknown]
  - Cough [Unknown]
  - Nausea [Unknown]
  - Fatigue [Unknown]
  - Hallucination [Unknown]
  - Malaise [Unknown]
  - Dehydration [Unknown]
  - Constipation [Unknown]
  - Dizziness [Unknown]
  - Somnolence [Unknown]
  - Product use issue [Unknown]
  - Atrial fibrillation [Not Recovered/Not Resolved]
  - Nocturia [Unknown]
  - Hepatic pain [Unknown]
  - Hypotension [Unknown]
  - Balance disorder [Unknown]
  - Vomiting [Unknown]
  - Dental caries [Unknown]
  - Bradycardia [Unknown]
  - Tinnitus [Unknown]
  - Enuresis [Unknown]
  - Hypoacusis [Unknown]
  - Osteoarthritis [Unknown]
  - Asthenia [Unknown]
  - Wrong technique in product usage process [Unknown]
  - Vision blurred [Unknown]
  - Headache [Unknown]

NARRATIVE: CASE EVENT DATE: 20180327
